FAERS Safety Report 8316457-X (Version None)
Quarter: 2012Q2

REPORT INFORMATION
  Report Type: 
  Country: None (occurrence: None)
  Receive Date: 20120425
  Receipt Date: 20120425
  Transmission Date: 20120825
  Serious: No
  Sender: FDA-Public Use
  Company Number: None

PATIENT
  Sex: Female
  Weight: 70.3075 kg

DRUGS (1)
  1. SOTALOL HCL [Suspect]
     Indication: ARRHYTHMIA
     Dosage: 2 DAILY
     Dates: start: 20100101, end: 20120101

REACTIONS (7)
  - ERYTHEMA [None]
  - BACK PAIN [None]
  - CARDIAC PACEMAKER INSERTION [None]
  - SKIN PAPILLOMA [None]
  - PAIN IN EXTREMITY [None]
  - DYSPNOEA [None]
  - DERMATITIS ALLERGIC [None]
